FAERS Safety Report 11613416 (Version 3)
Quarter: 2016Q1

REPORT INFORMATION
  Report Type: Report from Study
  Country: US (occurrence: US)
  Receive Date: 20151008
  Receipt Date: 20160226
  Transmission Date: 20160525
  Serious: Yes (Hospitalization)
  Sender: FDA-Public Use
  Company Number: US-KADMON PHARMACEUTICALS, LLC-KAD201510-003470

PATIENT
  Age: 68 Year
  Sex: Male

DRUGS (19)
  1. HUMALOG [Concomitant]
     Active Substance: INSULIN LISPRO
  2. OXYCODONE [Concomitant]
     Active Substance: OXYCODONE
  3. LOPRESSOR [Concomitant]
     Active Substance: METOPROLOL TARTRATE
  4. ALDACTONE [Concomitant]
     Active Substance: SPIRONOLACTONE
  5. NIFEDIPINE. [Concomitant]
     Active Substance: NIFEDIPINE
  6. CALCITRIOL. [Concomitant]
     Active Substance: CALCITRIOL
  7. LANTUS [Concomitant]
     Active Substance: INSULIN GLARGINE
  8. NORCO (VICODIN) [Concomitant]
  9. ZAROXOLYN [Concomitant]
     Active Substance: METOLAZONE
  10. TRAMADOL. [Concomitant]
     Active Substance: TRAMADOL
  11. ZOFRAN [Concomitant]
     Active Substance: ONDANSETRON HYDROCHLORIDE
  12. RIBAVIRIN 200 MG TABLETS [Suspect]
     Active Substance: RIBAVIRIN
     Indication: HEPATITIS C
     Route: 048
     Dates: start: 20150827, end: 20150929
  13. RIBAVIRIN 200 MG TABLETS [Suspect]
     Active Substance: RIBAVIRIN
     Route: 048
     Dates: start: 20150930, end: 20151001
  14. TECHNIVIE [Suspect]
     Active Substance: OMBITASVIR HEMINONAHYDRATE\PARITAPREVIR DIHYDRATE\RITONAVIR
     Indication: HEPATITIS C
     Dosage: TABLET
     Route: 048
     Dates: start: 20150826, end: 20151001
  15. LASIX [Concomitant]
     Active Substance: FUROSEMIDE
  16. PRILOSEC [Concomitant]
     Active Substance: OMEPRAZOLE MAGNESIUM
  17. VITAMIN B6 [Concomitant]
     Active Substance: PYRIDOXINE HYDROCHLORIDE
  18. OMEPRAZOLE. [Concomitant]
     Active Substance: OMEPRAZOLE
  19. QUESTRAN [Concomitant]
     Active Substance: CHOLESTYRAMINE

REACTIONS (9)
  - Peripheral swelling [Unknown]
  - Fatigue [Unknown]
  - Therapeutic embolisation [Unknown]
  - Pulmonary oedema [Recovered/Resolved]
  - Dyspnoea [Unknown]
  - Haemoglobin decreased [Unknown]
  - Renal disorder [Unknown]
  - Urine output decreased [Unknown]
  - Renal injury [Unknown]

NARRATIVE: CASE EVENT DATE: 201509
